FAERS Safety Report 17591242 (Version 2)
Quarter: 2020Q2

REPORT INFORMATION
  Report Type: Spontaneous
  Country: DE (occurrence: DE)
  Receive Date: 20200327
  Receipt Date: 20200408
  Transmission Date: 20200713
  Serious: Yes (Hospitalization, Other)
  Sender: FDA-Public Use
  Company Number: DE-PFIZER INC-2020127485

PATIENT
  Age: 1 Day
  Sex: Female

DRUGS (2)
  1. CYTOTEC [Suspect]
     Active Substance: MISOPROSTOL
     Indication: LABOUR INDUCTION
     Dosage: DAY1: 1 TABLET IN THE MORNING,NOON,IN THE EVENING.
     Route: 064
     Dates: start: 20191227, end: 20191227
  2. CYTOTEC [Suspect]
     Active Substance: MISOPROSTOL
     Dosage: DAY 2: MORNING + NOON 2 EACH
     Route: 064
     Dates: start: 20191228, end: 20191228

REACTIONS (5)
  - Blood glucose abnormal [Unknown]
  - Foetal exposure during delivery [Unknown]
  - Body temperature abnormal [Unknown]
  - Foetal heart rate abnormal [Unknown]
  - Foetal heart rate decreased [Unknown]

NARRATIVE: CASE EVENT DATE: 20191227
